FAERS Safety Report 8150171-9 (Version None)
Quarter: 2012Q1

REPORT INFORMATION
  Report Type: 
  Country: None (occurrence: None)
  Receive Date: 20120220
  Receipt Date: 20120213
  Transmission Date: 20120608
  Serious: No
  Sender: FDA-Public Use
  Company Number: US-PFIZER INC-2011302990

PATIENT
  Sex: Female

DRUGS (10)
  1. DEMEROL [Suspect]
     Dosage: UNK
  2. CIMETIDINE [Suspect]
     Dosage: UNK
  3. MORPHINE [Suspect]
     Dosage: UNK
  4. ACETYLSALICYLIC ACID SRT [Suspect]
     Dosage: UNK
  5. REGLAN [Suspect]
     Dosage: UNK
  6. FENTANYL-100 [Suspect]
     Dosage: UNK
  7. DILAUDID [Suspect]
     Dosage: UNK
  8. POTASSIUM PENICILLIN G [Suspect]
     Dosage: UNK
  9. ERYTHROMYCIN [Suspect]
     Dosage: UNK
  10. FLUNARIZINE [Suspect]
     Dosage: UNK

REACTIONS (1)
  - DRUG HYPERSENSITIVITY [None]
